FAERS Safety Report 4933093-3 (Version None)
Quarter: 2006Q1

REPORT INFORMATION
  Report Type: 
  Country: None (occurrence: None)
  Receive Date: 20060306
  Receipt Date: 20060214
  Transmission Date: 20060701
  Serious: Yes (Hospitalization)
  Sender: FDA-Public Use
  Company Number: ES-JNJFOC-20060300685

PATIENT
  Age: 65 Year
  Sex: Male

DRUGS (7)
  1. ADOLONTA RETARD [Suspect]
     Indication: RADICULITIS
     Route: 048
  2. NEURONTIN [Interacting]
     Indication: RADICULITIS
  3. LOSARTAN POTASSIUM [Concomitant]
     Indication: ESSENTIAL HYPERTENSION
  4. FUROSEMIDE [Concomitant]
     Indication: ESSENTIAL HYPERTENSION
  5. ASPIRIN [Concomitant]
     Indication: THROMBOSIS
  6. SIMVASTATIN [Concomitant]
     Indication: HYPERCHOLESTEROLAEMIA
  7. AMLODIPINE [Concomitant]
     Indication: ESSENTIAL HYPERTENSION

REACTIONS (9)
  - ASTHENIA [None]
  - CONFUSIONAL STATE [None]
  - DISORIENTATION [None]
  - DRUG INTERACTION [None]
  - FALL [None]
  - GAIT DISTURBANCE [None]
  - HALLUCINATION, VISUAL [None]
  - HYPERGLYCAEMIA [None]
  - INCOHERENT [None]
